FAERS Safety Report 14228114 (Version 1)
Quarter: 2017Q4

REPORT INFORMATION
  Report Type: Spontaneous
  Country: US (occurrence: None)
  Receive Date: 20171127
  Receipt Date: 20171127
  Transmission Date: 20180321
  Serious: Yes (Hospitalization, Other)
  Sender: FDA-Public Use
  Company Number: None

PATIENT
  Age: 65 Year
  Sex: Female
  Weight: 59.88 kg

DRUGS (5)
  1. LIPITOR [Concomitant]
     Active Substance: ATORVASTATIN CALCIUM
  2. VERAPAMIL [Concomitant]
     Active Substance: VERAPAMIL HYDROCHLORIDE
  3. CALCIUM [Concomitant]
     Active Substance: CALCIUM
  4. PROLIA [Suspect]
     Active Substance: DENOSUMAB
     Indication: BONE DENSITY ABNORMAL
     Dosage: FREQUENCY - ONCE EVERY SIX MONTHS?ROUTE - INJECTION
     Dates: start: 20170907
  5. NEUROTEN [Concomitant]

REACTIONS (7)
  - Pain [None]
  - Nausea [None]
  - Diarrhoea [None]
  - Rectal haemorrhage [None]
  - Vomiting [None]
  - Dehydration [None]
  - Gastric disorder [None]

NARRATIVE: CASE EVENT DATE: 20170910
